FAERS Safety Report 5315332-2 (Version None)
Quarter: 2007Q2

REPORT INFORMATION
  Report Type: 
  Country: None (occurrence: None)
  Receive Date: 20070502
  Receipt Date: 20070420
  Transmission Date: 20071010
  Serious: Yes (Other)
  Sender: FDA-Public Use
  Company Number: CA-PFIZER INC-2007033382

PATIENT
  Age: 54 Year
  Sex: Female

DRUGS (2)
  1. LYRICA [Suspect]
     Indication: RADICULOPATHY
     Dosage: DAILY DOSE:100MG
     Route: 048
  2. SYNTHROID [Concomitant]

REACTIONS (3)
  - ONYCHOMADESIS [None]
  - RASH PRURITIC [None]
  - SKIN EXFOLIATION [None]
